FAERS Safety Report 22154936 (Version 4)
Quarter: 2023Q2

REPORT INFORMATION
  Report Type: Spontaneous
  Country: US (occurrence: US)
  Receive Date: 20230330
  Receipt Date: 20230410
  Transmission Date: 20230722
  Serious: No
  Sender: FDA-Public Use
  Company Number: US-AMGEN-USASP2023049696

PATIENT
  Age: 80 Year
  Sex: Female
  Weight: 73.469 kg

DRUGS (4)
  1. NEULASTA [Suspect]
     Active Substance: PEGFILGRASTIM
     Indication: Prophylaxis
     Dosage: UNK, AFTER CHEMO
     Route: 065
     Dates: start: 202302
  2. PREDNISONE [Concomitant]
     Active Substance: PREDNISONE
     Indication: Product used for unknown indication
     Dosage: UNK (ON THE DAY OF CHEMOTHERAPY AND FOR 4 DAYS AFTER)
  3. PREDNISONE [Concomitant]
     Active Substance: PREDNISONE
     Route: 050
  4. GAS-X [Concomitant]
     Active Substance: DIMETHICONE

REACTIONS (5)
  - Injection site discolouration [Unknown]
  - Asthenia [Unknown]
  - Urticaria [Unknown]
  - Flatulence [Unknown]
  - Product communication issue [Unknown]

NARRATIVE: CASE EVENT DATE: 20230101
